FAERS Safety Report 4425168-2 (Version None)
Quarter: 2004Q3

REPORT INFORMATION
  Report Type: 
  Country: None (occurrence: None)
  Receive Date: 20040813
  Receipt Date: 20040810
  Transmission Date: 20050211
  Serious: Yes (Death)
  Sender: FDA-Public Use
  Company Number: US-JNJFOC-20040404836

PATIENT
  Sex: Male
  Weight: 59 kg

DRUGS (4)
  1. DURAGESIC [Suspect]
     Route: 062
  2. PERCOCET [Concomitant]
     Route: 049
  3. PERCOCET [Concomitant]
     Indication: PAIN
     Dosage: TAKES 4 PER DAY
     Route: 049
  4. PREDNISONE [Concomitant]

REACTIONS (4)
  - BLOOD ALKALINE PHOSPHATASE INCREASED [None]
  - CACHEXIA [None]
  - DYSPNOEA EXACERBATED [None]
  - MALIGNANT NEOPLASM PROGRESSION [None]
